FAERS Safety Report 7510285-0 (Version None)
Quarter: 2011Q2

REPORT INFORMATION
  Report Type: 
  Country: None (occurrence: None)
  Receive Date: 20110527
  Receipt Date: 20110516
  Transmission Date: 20111010
  Serious: Yes (Hospitalization)
  Sender: FDA-Public Use
  Company Number: CZ-UCBSA-032871

PATIENT
  Sex: Female
  Weight: 52 kg

DRUGS (1)
  1. CIMZIA [Suspect]
     Indication: SPONDYLITIS
     Dosage: NUMMBER OF DOSES RECEIVED:12 INJECTIONS
     Route: 058
     Dates: start: 20101019, end: 20110111

REACTIONS (2)
  - LYMPHADENOPATHY [None]
  - LARYNGITIS [None]
